FAERS Safety Report 8591023 (Version 4)
Quarter: 2013Q2

REPORT INFORMATION
  Report Type: Spontaneous
  Country: US (occurrence: US)
  Receive Date: 20120601
  Receipt Date: 20130515
  Transmission Date: 20140414
  Serious: Yes (Death)
  Sender: FDA-Public Use
  Company Number: US-ELI_LILLY_AND_COMPANY-US201205008780

PATIENT
  Age: 82 Year
  Sex: Female
  Weight: 61.22 kg

DRUGS (22)
  1. FORTEO [Suspect]
     Indication: OSTEOPOROSIS
     Dosage: 20 UG, QD
     Dates: start: 201203
  2. ASPIRIN [Concomitant]
     Dosage: 81 MG, QD
     Route: 048
  3. CARVEDILOL [Concomitant]
     Dosage: 12.5 MG, BID
     Route: 048
     Dates: start: 20120612
  4. DONEPEZIL HCL [Concomitant]
     Dosage: 5 MG, QD
     Route: 048
     Dates: start: 20120416
  5. FLUTICASONE PROPIONATE [Concomitant]
     Dosage: 5 %, BID
     Dates: start: 20120614
  6. FOSAMAX [Concomitant]
     Dosage: 70 MG, UNK
     Route: 048
  7. FUROSEMIDE [Concomitant]
     Dosage: 40 MG, QD
     Route: 048
     Dates: start: 20120112
  8. HYDROCODONE W/ACETAMINOPHEN [Concomitant]
     Indication: PAIN
     Dosage: 500 MG, BID
     Route: 048
     Dates: start: 20110210
  9. HYDROCODONE W/ACETAMINOPHEN [Concomitant]
     Dosage: 500 MG, PRN
     Route: 048
     Dates: start: 20110210
  10. KLOR-CON [Concomitant]
     Dosage: 10 MEQ, BID
     Route: 048
     Dates: start: 20120112
  11. LISINOPRIL [Concomitant]
     Dosage: 10 MG, QD
     Route: 048
     Dates: start: 20100525
  12. LORAZEPAM [Concomitant]
     Dosage: 1 MG, BID
     Route: 048
     Dates: start: 20100326
  13. LORAZEPAM [Concomitant]
     Dosage: 1 MG, PRN
     Route: 048
     Dates: start: 20100326
  14. NAMENDA [Concomitant]
     Dosage: 10 MG, QD
     Route: 048
  15. NAMENDA [Concomitant]
     Dosage: 5 MG, QD
     Route: 048
  16. OXYBUTYNIN CHLORIDE [Concomitant]
     Dosage: 10 MG, BID
     Route: 048
     Dates: start: 20120614
  17. OXYBUTYNIN CHLORIDE [Concomitant]
     Dosage: 5 MG, BID
     Route: 048
     Dates: start: 20120312
  18. PHENAZOPYRIDINE HCL [Concomitant]
     Indication: URINARY TRACT PAIN
     Dosage: 100 MG, TID
     Route: 048
     Dates: start: 20121130
  19. PHENAZOPYRIDINE HCL [Concomitant]
     Dosage: 100 MG, PRN
     Route: 048
     Dates: start: 20121130
  20. POTASSIUM CHLORIDE [Concomitant]
     Dosage: 20 MEQ, BID
     Route: 048
     Dates: start: 20120606
  21. SEROQUEL [Concomitant]
     Dosage: 50 MG, QD
     Route: 048
     Dates: start: 20120713
  22. SIMVASTATIN [Concomitant]
     Indication: BLOOD CHOLESTEROL
     Dosage: 20 MG, QD
     Route: 048
     Dates: start: 20110329

REACTIONS (5)
  - Failure to thrive [Fatal]
  - Local swelling [Unknown]
  - Oedema [Unknown]
  - Fall [Unknown]
  - Fall [Unknown]
